FAERS Safety Report 21126133 (Version 1)
Quarter: 2022Q3

REPORT INFORMATION
  Report Type: Spontaneous
  Country: US (occurrence: US)
  Receive Date: 20220725
  Receipt Date: 20220725
  Transmission Date: 20221026
  Serious: No
  Sender: FDA-Public Use
  Company Number: US-INSUD PHARMA-2207US02931

PATIENT

DRUGS (1)
  1. JAIMIESS [Suspect]
     Active Substance: ETHINYL ESTRADIOL\LEVONORGESTREL
     Indication: Endometriosis
     Dosage: UNK
     Route: 048
     Dates: start: 202103

REACTIONS (5)
  - Intermenstrual bleeding [Not Recovered/Not Resolved]
  - Intentional product use issue [Unknown]
  - Product dose omission issue [Unknown]
  - Off label use [Unknown]
  - Therapeutic response unexpected [Unknown]
